FAERS Safety Report 6401615-1 (Version None)
Quarter: 2009Q4

REPORT INFORMATION
  Report Type: 
  Country: None (occurrence: None)
  Receive Date: 20091015
  Receipt Date: 20091009
  Transmission Date: 20100525
  Serious: Yes (Other)
  Sender: FDA-Public Use
  Company Number: NZ-AVENTIS-200916178EU

PATIENT
  Sex: Male

DRUGS (3)
  1. LASIX LIQUIDUM [Suspect]
     Dosage: DOSE: UNK
     Route: 048
     Dates: start: 20091008
  2. DILANTIN [Concomitant]
  3. FUROSEMIDE [Concomitant]
     Dosage: DOSE: UNK
     Route: 048
     Dates: end: 20091007

REACTIONS (4)
  - ABDOMINAL PAIN UPPER [None]
  - CONVULSION [None]
  - DIARRHOEA [None]
  - FLATULENCE [None]
